FAERS Safety Report 8396995-4 (Version None)
Quarter: 2012Q2

REPORT INFORMATION
  Report Type: 
  Country: None (occurrence: None)
  Receive Date: 20120530
  Receipt Date: 20120525
  Transmission Date: 20120825
  Serious: Yes (Other)
  Sender: FDA-Public Use
  Company Number: GB-PFIZER INC-2012082495

PATIENT
  Age: 60 Year
  Sex: Female
  Weight: 62 kg

DRUGS (1)
  1. VARENICLINE TARTRATE [Suspect]
     Indication: SMOKING CESSATION THERAPY
     Dosage: 1 MG, 2X/DAY
     Route: 048
     Dates: start: 20120125, end: 20120320

REACTIONS (9)
  - AGITATION [None]
  - DYSPNOEA [None]
  - DYSPEPSIA [None]
  - STRESS AT WORK [None]
  - HAEMATOCHEZIA [None]
  - DIARRHOEA [None]
  - ANGER [None]
  - PANIC ATTACK [None]
  - NAUSEA [None]
